FAERS Safety Report 5202905-0 (Version None)
Quarter: 2006Q4

REPORT INFORMATION
  Report Type: 
  Country: None (occurrence: None)
  Receive Date: 20061016
  Receipt Date: 20060801
  Transmission Date: 20070319
  Serious: Yes (Other)
  Sender: FDA-Public Use
  Company Number: 2006094271

PATIENT

DRUGS (1)
  1. VFEND [Suspect]
     Indication: DRUG USE FOR UNKNOWN INDICATION
     Dosage: 2400 MG, ORAL
     Route: 048
     Dates: start: 20000731, end: 20060801

REACTIONS (2)
  - CONFUSIONAL STATE [None]
  - OVERDOSE [None]
